FAERS Safety Report 5677556-4 (Version None)
Quarter: 2008Q1

REPORT INFORMATION
  Report Type: 
  Country: None (occurrence: None)
  Receive Date: 20080324
  Receipt Date: 20080311
  Transmission Date: 20080703
  Serious: Yes (Hospitalization)
  Sender: FDA-Public Use
  Company Number: JP-ROCHE-553287

PATIENT
  Age: 72 Year

DRUGS (7)
  1. PEGASYS [Suspect]
     Indication: HEPATITIS C
     Route: 058
     Dates: start: 20070901
  2. URSO 250 [Concomitant]
     Dosage: FORM REPORTED AS ORAL FORMULATION (NOS)
     Route: 048
  3. PROHEPARUM [Concomitant]
     Route: 048
  4. FAMOTIDINE [Concomitant]
  5. PL [Concomitant]
     Route: 048
  6. CLARITHROMYCIN [Concomitant]
     Route: 048
  7. LOXONIN [Concomitant]
     Dosage: FORM REPORTED AS ORAL FORMULATION (NOS)
     Route: 048

REACTIONS (1)
  - TUBERCULOSIS [None]
